FAERS Safety Report 7906140-4 (Version None)
Quarter: 2011Q4

REPORT INFORMATION
  Report Type: 
  Country: None (occurrence: None)
  Receive Date: 20111027
  Receipt Date: 20110322
  Transmission Date: 20120403
  Serious: Yes (Hospitalization)
  Sender: FDA-Public Use
  Company Number: 2011-0840

PATIENT
  Age: 4 Year
  Sex: Female
  Weight: 18 kg

DRUGS (3)
  1. INCRELEX [Suspect]
     Indication: INSULIN-LIKE GROWTH FACTOR DECREASED
     Dosage: SEE IMAGE
     Route: 058
     Dates: start: 20100609, end: 20100616
  2. INCRELEX [Suspect]
     Indication: INSULIN-LIKE GROWTH FACTOR DECREASED
     Dosage: SEE IMAGE
     Route: 058
     Dates: start: 20100625, end: 20110223
  3. INCRELEX [Suspect]
     Indication: INSULIN-LIKE GROWTH FACTOR DECREASED
     Dosage: SEE IMAGE
     Route: 058
     Dates: start: 20100617, end: 20100624

REACTIONS (2)
  - TONSILLAR HYPERTROPHY [None]
  - ADENOIDAL HYPERTROPHY [None]
